FAERS Safety Report 8456451-1 (Version None)
Quarter: 2012Q2

REPORT INFORMATION
  Report Type: 
  Country: None (occurrence: None)
  Receive Date: 20120621
  Receipt Date: 20110602
  Transmission Date: 20120825
  Serious: No
  Sender: FDA-Public Use
  Company Number: US-ALLERGAN-1107548US

PATIENT
  Age: 77 Year
  Sex: Male

DRUGS (1)
  1. OFLOXACIN [Suspect]
     Indication: CONJUNCTIVITIS INFECTIVE
     Dosage: UNK

REACTIONS (1)
  - DRUG INEFFECTIVE [None]
